FAERS Safety Report 5796141-7 (Version None)
Quarter: 2008Q3

REPORT INFORMATION
  Report Type: 
  Country: None (occurrence: None)
  Receive Date: 20080701
  Receipt Date: 20080626
  Transmission Date: 20090109
  Serious: Yes (Life-Threatening)
  Sender: FDA-Public Use
  Company Number: JP-BRISTOL-MYERS SQUIBB COMPANY-14244123

PATIENT
  Age: 15 Year
  Sex: Male

DRUGS (2)
  1. TAXOL [Suspect]
     Indication: CHORIOCARCINOMA
     Route: 041
  2. GEMZAR [Suspect]
     Indication: CHORIOCARCINOMA
     Route: 041

REACTIONS (1)
  - HAEMOLYTIC URAEMIC SYNDROME [None]
